FAERS Safety Report 5446538-X (Version None)
Quarter: 2007Q3

REPORT INFORMATION
  Report Type: 
  Country: None (occurrence: None)
  Receive Date: 20070907
  Receipt Date: 20070828
  Transmission Date: 20080115
  Serious: Yes (Death)
  Sender: FDA-Public Use
  Company Number: US-AMGEN-US240999

PATIENT
  Sex: Male
  Weight: 81.7 kg

DRUGS (6)
  1. PROCRIT [Suspect]
     Indication: ANAEMIA OF MALIGNANT DISEASE
  2. DOXIL [Suspect]
     Indication: NON-SMALL CELL LUNG CANCER
     Dates: start: 20070401, end: 20070601
  3. AVASTIN [Concomitant]
  4. ALOXI [Concomitant]
  5. DECADRON [Concomitant]
  6. VITAMIN B-12 [Concomitant]

REACTIONS (1)
  - DEATH [None]
